FAERS Safety Report 13692314 (Version 1)
Quarter: 2017Q2

REPORT INFORMATION
  Report Type: Spontaneous
  Country: US (occurrence: US)
  Receive Date: 20170627
  Receipt Date: 20170627
  Transmission Date: 20170830
  Serious: No
  Sender: FDA-Public Use
  Company Number: US-ASTRAZENECA-2017SE64778

PATIENT
  Age: 61 Year
  Sex: Female
  Weight: 59 kg

DRUGS (1)
  1. SYMBICORT [Suspect]
     Active Substance: BUDESONIDE\FORMOTEROL FUMARATE DIHYDRATE
     Indication: ASTHMA
     Dosage: 80/4.5 MCG, 1 OR 2 INHALATIONS IN THE MORNING DEPENDING ON THE SEVERITY
     Route: 055
     Dates: start: 201610

REACTIONS (4)
  - Pernicious anaemia [Unknown]
  - Contusion [Recovering/Resolving]
  - Off label use [Unknown]
  - Intentional product misuse [Unknown]

NARRATIVE: CASE EVENT DATE: 201610
